FAERS Safety Report 18415637 (Version 1)
Quarter: 2020Q4

REPORT INFORMATION
  Report Type: Spontaneous
  Country: US (occurrence: US)
  Receive Date: 20201022
  Receipt Date: 20201022
  Transmission Date: 20210114
  Serious: No
  Sender: FDA-Public Use
  Company Number: US-JNJFOC-20201006773

PATIENT
  Sex: Female

DRUGS (1)
  1. TYLENOL 8HR [Suspect]
     Active Substance: ACETAMINOPHEN
     Indication: BACK PAIN
     Dosage: 1 CAPLETS FIRST TIME TODAY
     Route: 048
     Dates: end: 20201001

REACTIONS (3)
  - Arthralgia [Recovered/Resolved]
  - Product packaging difficult to open [Unknown]
  - Incorrect dose administered [Unknown]
